FAERS Safety Report 5759340-6 (Version None)
Quarter: 2008Q2

REPORT INFORMATION
  Report Type: 
  Country: None (occurrence: None)
  Receive Date: 20080530
  Receipt Date: 20080519
  Transmission Date: 20081010
  Serious: Yes (Death)
  Sender: FDA-Public Use
  Company Number: 100#08#2008-02705

PATIENT
  Age: 41 Year
  Sex: Female

DRUGS (8)
  1. COPAXONE [Suspect]
     Indication: MULTIPLE SCLEROSIS
  2. RANITIDINE HYDROCHLORIDE [Concomitant]
  3. SERTRALINE [Concomitant]
  4. BACLOFEN [Concomitant]
  5. METHYLPHENIDATE HCL [Concomitant]
  6. ZALEPLON [Concomitant]
  7. PREDNISONE TAB [Concomitant]
  8. TOLTERODINE TARTRATE [Concomitant]

REACTIONS (12)
  - ASPIRATION [None]
  - BRAIN OEDEMA [None]
  - COMA [None]
  - DISORIENTATION [None]
  - DYSARTHRIA [None]
  - MULTIPLE DRUG OVERDOSE INTENTIONAL [None]
  - PNEUMONITIS [None]
  - PUPIL FIXED [None]
  - RENAL FAILURE [None]
  - RHABDOMYOLYSIS [None]
  - STATUS EPILEPTICUS [None]
  - VOMITING [None]
